FAERS Safety Report 5710321-8 (Version None)
Quarter: 2008Q2

REPORT INFORMATION
  Report Type: 
  Country: None (occurrence: None)
  Receive Date: 20080418
  Receipt Date: 20080407
  Transmission Date: 20081010
  Serious: Yes (Death, Other)
  Sender: FDA-Public Use
  Company Number: JP-PFIZER INC-2008030677

PATIENT
  Age: 81 Year
  Sex: Female

DRUGS (3)
  1. ZOLOFT [Suspect]
     Indication: DEPRESSION
     Dosage: DAILY DOSE:50MG
     Route: 048
     Dates: start: 20080201, end: 20080211
  2. LANSOPRAZOLE [Suspect]
     Indication: GASTRIC ULCER
     Dosage: DAILY DOSE:15MG
     Route: 048
  3. DOGMATYL [Concomitant]
     Route: 048

REACTIONS (3)
  - CARDIAC FAILURE CHRONIC [None]
  - PNEUMONIA [None]
  - TOXIC SKIN ERUPTION [None]
